FAERS Safety Report 14488266 (Version 1)
Quarter: 2018Q1

REPORT INFORMATION
  Report Type: Spontaneous
  Country: GB (occurrence: GB)
  Receive Date: 20180205
  Receipt Date: 20180205
  Transmission Date: 20180509
  Serious: Yes (Death)
  Sender: FDA-Public Use
  Company Number: GB-CHIESI USA INC.-GB-2018CHI000024

PATIENT
  Sex: Female

DRUGS (1)
  1. CUROSURF [Suspect]
     Active Substance: PORACTANT ALFA
     Indication: PRODUCT USED FOR UNKNOWN INDICATION
     Dosage: 600 MG, UNK
     Route: 007
     Dates: start: 20160111, end: 20160111

REACTIONS (2)
  - Death neonatal [Fatal]
  - Expired product administered [Recovered/Resolved]

NARRATIVE: CASE EVENT DATE: 20160111
